FAERS Safety Report 6577664-X (Version None)
Quarter: 2010Q1

REPORT INFORMATION
  Report Type: 
  Country: None (occurrence: None)
  Receive Date: 20100211
  Receipt Date: 20100203
  Transmission Date: 20100710
  Serious: Yes (Other)
  Sender: FDA-Public Use
  Company Number: PHHY2010US06460

PATIENT

DRUGS (1)
  1. EXELON [Suspect]
     Route: 062

REACTIONS (2)
  - DYSARTHRIA [None]
  - TREMOR [None]
